FAERS Safety Report 13390206 (Version 1)
Quarter: 2017Q1

REPORT INFORMATION
  Report Type: Spontaneous
  Country: US (occurrence: US)
  Receive Date: 20170330
  Receipt Date: 20170330
  Transmission Date: 20170429
  Serious: Yes (Hospitalization)
  Sender: FDA-Public Use
  Company Number: None

PATIENT
  Age: 46 Year
  Sex: Male
  Weight: 90.8 kg

DRUGS (5)
  1. SAPHRIS [Suspect]
     Active Substance: ASENAPINE MALEATE
     Indication: SCHIZOPHRENIA
     Dosage: ?          QUANTITY:/ DEH/RRTB;?
     Route: 060
  2. DELTA BRAIN WAVE TRAINING [Concomitant]
  3. MELATONIN [Concomitant]
     Active Substance: MELATONIN
  4. ABILIFY [Concomitant]
     Active Substance: ARIPIPRAZOLE
  5. ALTERILL [Concomitant]

REACTIONS (6)
  - Suicidal ideation [None]
  - Mania [None]
  - Depression [None]
  - Insomnia [None]
  - Drug ineffective [None]
  - Drug dependence [None]

NARRATIVE: CASE EVENT DATE: 20170221
